FAERS Safety Report 4856019-X (Version None)
Quarter: 2005Q4

REPORT INFORMATION
  Report Type: 
  Country: None (occurrence: None)
  Receive Date: 20051216
  Receipt Date: 20051208
  Transmission Date: 20060501
  Serious: Yes (Hospitalization)
  Sender: FDA-Public Use
  Company Number: FR-JNJFOC-20051201755

PATIENT
  Age: 50 Year
  Sex: Male
  Weight: 66 kg

DRUGS (11)
  1. KETODERM [Suspect]
     Indication: FUNGAL INFECTION
     Route: 061
     Dates: start: 20051030, end: 20051103
  2. PEVARYL [Suspect]
     Indication: FUNGAL INFECTION
     Route: 062
     Dates: start: 20051030, end: 20051103
  3. FUCIDINE CAP [Suspect]
     Indication: FUNGAL INFECTION
     Route: 061
     Dates: start: 20051030, end: 20051103
  4. NERISONE [Suspect]
     Indication: FUNGAL INFECTION
     Route: 061
     Dates: start: 20051102, end: 20051103
  5. DEXERYL [Suspect]
     Route: 061
     Dates: start: 20051030, end: 20051103
  6. DEXERYL [Suspect]
     Route: 061
     Dates: start: 20051030, end: 20051103
  7. DEXERYL [Suspect]
     Route: 061
     Dates: start: 20051030, end: 20051103
  8. DEXERYL [Suspect]
     Indication: FUNGAL INFECTION
     Route: 061
     Dates: start: 20051030, end: 20051103
  9. POLARAMINE [Suspect]
     Indication: DRUG USE FOR UNKNOWN INDICATION
     Route: 048
     Dates: start: 20051030, end: 20051103
  10. EQUANIL [Concomitant]
     Route: 065
  11. LEXOMIL [Concomitant]
     Route: 065

REACTIONS (1)
  - ACUTE GENERALISED EXANTHEMATOUS PUSTULOSIS [None]
